FAERS Safety Report 14679621 (Version 1)
Quarter: 2018Q1

REPORT INFORMATION
  Report Type: Spontaneous
  Country: FR (occurrence: FR)
  Receive Date: 20180326
  Receipt Date: 20180326
  Transmission Date: 20180509
  Serious: Yes (Other)
  Sender: FDA-Public Use
  Company Number: FR-MERCK KGAA-2044507

PATIENT
  Age: 48 Year
  Sex: Female
  Weight: 70 kg

DRUGS (3)
  1. NOVOTHYROX [Suspect]
     Active Substance: LEVOTHYROXINE SODIUM
     Indication: AUTOIMMUNE THYROIDITIS
     Dates: start: 2017
  2. NOVOTHYROX [Suspect]
     Active Substance: LEVOTHYROXINE SODIUM
     Dates: start: 20170925
  3. NOVOTHYROX [Suspect]
     Active Substance: LEVOTHYROXINE SODIUM
     Dates: start: 20171021

REACTIONS (21)
  - Illness anxiety disorder [None]
  - Disturbance in attention [None]
  - Hot flush [None]
  - Muscle fatigue [None]
  - Impatience [None]
  - Mental fatigue [None]
  - Asthenia [None]
  - Hyperthyroidism [None]
  - Musculoskeletal discomfort [None]
  - Night sweats [None]
  - Emotional distress [None]
  - Bradycardia [None]
  - Arthropathy [None]
  - Irritability [None]
  - Blood creatinine increased [None]
  - Blood creatine phosphokinase increased [None]
  - Headache [None]
  - Pain [None]
  - Feeling abnormal [None]
  - Loss of personal independence in daily activities [None]
  - Anger [None]

NARRATIVE: CASE EVENT DATE: 20170925
